FAERS Safety Report 4661656-1 (Version None)
Quarter: 2005Q2

REPORT INFORMATION
  Report Type: 
  Country: None (occurrence: None)
  Receive Date: 20050513
  Receipt Date: 20050503
  Transmission Date: 20051028
  Serious: Yes (Life-Threatening, Hospitalization, Disabling)
  Sender: FDA-Public Use
  Company Number: US-MERCK-0505USA00495

PATIENT
  Age: 47 Year
  Sex: Male

DRUGS (1)
  1. VIOXX [Suspect]
     Indication: LIMB INJURY
     Route: 048

REACTIONS (2)
  - COMA [None]
  - MYOCARDIAL INFARCTION [None]
